FAERS Safety Report 6143557-5 (Version None)
Quarter: 2009Q2

REPORT INFORMATION
  Report Type: 
  Country: None (occurrence: None)
  Receive Date: 20090403
  Receipt Date: 20090323
  Transmission Date: 20091009
  Serious: Yes (Other)
  Sender: FDA-Public Use
  Company Number: JP-PFIZER INC-2009179425

PATIENT

DRUGS (1)
  1. ZOLOFT [Suspect]
     Dosage: 25 MG, UNK
     Route: 048

REACTIONS (1)
  - GASTRIC ULCER [None]
